FAERS Safety Report 6379893-7 (Version None)
Quarter: 2009Q3

REPORT INFORMATION
  Report Type: 
  Country: None (occurrence: None)
  Receive Date: 20090928
  Receipt Date: 20090916
  Transmission Date: 20100115
  Serious: Yes (Other)
  Sender: FDA-Public Use
  Company Number: PHEH2008US02653

PATIENT
  Sex: Female

DRUGS (7)
  1. ZOMETA [Suspect]
     Dosage: UNK
     Dates: end: 20030101
  2. AREDIA [Suspect]
     Dosage: 30MG
     Route: 042
     Dates: start: 20030101
  3. ARIMIDEX [Concomitant]
     Dosage: 1MG DAILY
     Route: 048
  4. METHOTREXATE [Concomitant]
  5. PREDNISONE TAB [Concomitant]
     Indication: RHEUMATOID ARTHRITIS
     Dosage: UNK
     Dates: start: 19900101
  6. NORVASC [Concomitant]
     Dosage: UNK
     Dates: start: 20010101
  7. ATENOLOL [Concomitant]
     Dosage: UNK
     Dates: start: 19980101

REACTIONS (19)
  - ANAEMIA [None]
  - ANHEDONIA [None]
  - ANXIETY [None]
  - ASTHENIA [None]
  - ATRIAL FIBRILLATION [None]
  - BONE PAIN [None]
  - DENTAL OPERATION [None]
  - DENTURE WEARER [None]
  - DISABILITY [None]
  - INJURY [None]
  - JAW OPERATION [None]
  - METASTASES TO BONE [None]
  - NEUROPATHY PERIPHERAL [None]
  - OSTEOMYELITIS [None]
  - OSTEONECROSIS [None]
  - PAIN [None]
  - RESORPTION BONE INCREASED [None]
  - THROMBOSIS [None]
  - TOOTH EXTRACTION [None]
